FAERS Safety Report 6169080-X (Version None)
Quarter: 2009Q2

REPORT INFORMATION
  Report Type: 
  Country: None (occurrence: None)
  Receive Date: 20090424
  Receipt Date: 20090120
  Transmission Date: 20091009
  Serious: No
  Sender: FDA-Public Use
  Company Number: ALL1-2009-00154

PATIENT
  Age: 38 Year
  Sex: Female
  Weight: 77.1 kg

DRUGS (3)
  1. VYVANSE [Suspect]
     Indication: FIBROMYALGIA
     Dosage: 50 MG, 1X/DAY:QD, ORAL
     Route: 048
     Dates: start: 20090101
  2. TOPAMAX [Concomitant]
  3. WELLBUTRIN [Concomitant]

REACTIONS (2)
  - IRRITABILITY [None]
  - OFF LABEL USE [None]
